FAERS Safety Report 21995272 (Version 5)
Quarter: 2023Q4

REPORT INFORMATION
  Report Type: Report from Study
  Country: US (occurrence: US)
  Receive Date: 20230215
  Receipt Date: 20231127
  Transmission Date: 20240110
  Serious: Yes (Other)
  Sender: FDA-Public Use
  Company Number: US-OTSUKA-2023_003757

PATIENT
  Sex: Male

DRUGS (4)
  1. TOLVAPTAN [Suspect]
     Active Substance: TOLVAPTAN
     Indication: Congenital cystic kidney disease
     Dosage: UNK
     Route: 065
     Dates: start: 20190324
  2. TOLVAPTAN [Suspect]
     Active Substance: TOLVAPTAN
     Dosage: 90 MG
     Route: 065
  3. TOLVAPTAN [Suspect]
     Active Substance: TOLVAPTAN
     Dosage: 30 MG
     Route: 065
  4. TOLVAPTAN [Suspect]
     Active Substance: TOLVAPTAN
     Dosage: UNK (HALF OF HIS CURRENTLY PRESCRIBED DOSE OF 90/30MG)
     Route: 065
     Dates: start: 20190329

REACTIONS (5)
  - Polycystic liver disease [Unknown]
  - Liver transplant [Unknown]
  - Therapy interrupted [Unknown]
  - Product prescribing error [Unknown]
  - Wrong technique in product usage process [Unknown]

NARRATIVE: CASE EVENT DATE: 20190329
